FAERS Safety Report 7758976-0 (Version None)
Quarter: 2011Q3

REPORT INFORMATION
  Report Type: 
  Country: None (occurrence: None)
  Receive Date: 20110915
  Receipt Date: 20110830
  Transmission Date: 20111222
  Serious: Yes (Hospitalization)
  Sender: FDA-Public Use
  Company Number: 2011080246

PATIENT
  Age: 41 Year
  Sex: Female

DRUGS (7)
  1. SOMA [Suspect]
     Indication: BACK PAIN
     Dosage: 350 MG, AS REQUIRED, ORAL; 3-350 MG TABLETS, ORAL
     Route: 048
     Dates: start: 20110617, end: 20110617
  2. SOMA [Suspect]
     Indication: ABDOMINAL PAIN
     Dosage: 350 MG, AS REQUIRED, ORAL; 3-350 MG TABLETS, ORAL
     Route: 048
     Dates: start: 20110617, end: 20110617
  3. SOMA [Suspect]
     Indication: BACK PAIN
     Dosage: 350 MG, AS REQUIRED, ORAL; 3-350 MG TABLETS, ORAL
     Route: 048
     Dates: start: 20110301, end: 20110301
  4. SOMA [Suspect]
     Indication: ABDOMINAL PAIN
     Dosage: 350 MG, AS REQUIRED, ORAL; 3-350 MG TABLETS, ORAL
     Route: 048
     Dates: start: 20110301, end: 20110301
  5. TOPIRAMATE [Concomitant]
  6. AMITRIPTYLINE HCL [Concomitant]
  7. REBIF (INEFECTION BETA) [Concomitant]

REACTIONS (6)
  - ABASIA [None]
  - HYPOAESTHESIA [None]
  - MUSCLE SPASMS [None]
  - FEELING ABNORMAL [None]
  - ABDOMINAL PAIN [None]
  - SPEECH DISORDER [None]
